FAERS Safety Report 8538543-1 (Version None)
Quarter: 2012Q3

REPORT INFORMATION
  Report Type: 
  Country: None (occurrence: None)
  Receive Date: 20120718
  Receipt Date: 20120718
  Transmission Date: 20120928
  Serious: Yes (Hospitalization)
  Sender: FDA-Public Use
  Company Number: None

PATIENT
  Age: 60 Year
  Sex: Female
  Weight: 74.8435 kg

DRUGS (1)
  1. OXYMORPHONE HYDROCHLORIDE (OPANA XR) [Suspect]
     Indication: SCOLIOSIS
     Dosage: 10 MG Q 12 HRS BY MOUTH
     Route: 048

REACTIONS (1)
  - BLINDNESS TRANSIENT [None]
